FAERS Safety Report 12832915 (Version 2)
Quarter: 2016Q4

REPORT INFORMATION
  Report Type: Spontaneous
  Country: BR (occurrence: BR)
  Receive Date: 20161010
  Receipt Date: 20161010
  Transmission Date: 20170207
  Serious: Yes (Hospitalization, Other)
  Sender: FDA-Public Use
  Company Number: BR-009507513-1610BRA000877

PATIENT
  Sex: Female
  Weight: 60 kg

DRUGS (3)
  1. ROACUTAN [Concomitant]
     Active Substance: ISOTRETINOIN
     Dosage: UNK
  2. NUVARING [Suspect]
     Active Substance: ETHINYL ESTRADIOL\ETONOGESTREL
     Dosage: UNK, 3 WEEKS OF USE AND ONE WEEK OF PAUSE
     Route: 067
     Dates: end: 2014
  3. NUVARING [Suspect]
     Active Substance: ETHINYL ESTRADIOL\ETONOGESTREL
     Indication: CONTRACEPTION
     Dosage: 1 RING, 3 WEEKS OF USE AND ONE WEEK OF PAUSE
     Route: 067
     Dates: start: 20160831

REACTIONS (10)
  - Abortion spontaneous [Recovered/Resolved]
  - Varicose vein [Not Recovered/Not Resolved]
  - General symptom [Recovered/Resolved]
  - Anaemia [Recovering/Resolving]
  - Varicose vein operation [Recovered/Resolved]
  - Pain [Unknown]
  - Maternal exposure before pregnancy [Unknown]
  - Chloasma [Not Recovered/Not Resolved]
  - Pain in extremity [Recovered/Resolved]
  - Incorrect drug administration duration [Unknown]

NARRATIVE: CASE EVENT DATE: 2008
